FAERS Safety Report 12618314 (Version 1)
Quarter: 2016Q3

REPORT INFORMATION
  Report Type: Spontaneous
  Country: US (occurrence: None)
  Receive Date: 20160802
  Receipt Date: 20160802
  Transmission Date: 20161109
  Serious: No
  Sender: FDA-Public Use
  Company Number: None

PATIENT
  Age: 65 Year
  Sex: Male

DRUGS (1)
  1. TACROLIMUS 1MG CAPSULE DR. REDDYS [Suspect]
     Active Substance: TACROLIMUS

REACTIONS (2)
  - Insomnia [None]
  - Psychomotor hyperactivity [None]

NARRATIVE: CASE EVENT DATE: 20160801
